FAERS Safety Report 8151530-0 (Version None)
Quarter: 2012Q1

REPORT INFORMATION
  Report Type: 
  Country: None (occurrence: None)
  Receive Date: 20120220
  Receipt Date: 20120208
  Transmission Date: 20120608
  Serious: Yes (Other)
  Sender: FDA-Public Use
  Company Number: DE-ROCHE-1040482

PATIENT
  Sex: Male

DRUGS (7)
  1. RANIBIZUMAB [Suspect]
     Indication: AGE-RELATED MACULAR DEGENERATION
     Route: 050
     Dates: start: 20101006
  2. LISIHEXAL [Concomitant]
     Dosage: 2.5 OT
  3. ACTRAPID PENFILL [Concomitant]
  4. OBSIDAN [Concomitant]
  5. HYLAN [Concomitant]
  6. OFTAQUIX [Concomitant]
  7. DEXA-GENTAMICIN [Concomitant]

REACTIONS (1)
  - AGE-RELATED MACULAR DEGENERATION [None]
